FAERS Safety Report 25081391 (Version 1)
Quarter: 2025Q1

REPORT INFORMATION
  Report Type: Spontaneous
  Country: CA (occurrence: CA)
  Receive Date: 20250316
  Receipt Date: 20250316
  Transmission Date: 20250408
  Serious: Yes (Disabling)
  Sender: JOHNSON AND JOHNSON
  Company Number: CA-JNJFOC-20250324168

PATIENT
  Age: 38 Year
  Sex: Female

DRUGS (3)
  1. STELARA [Suspect]
     Active Substance: USTEKINUMAB
     Indication: Colitis ulcerative
     Route: 042
  2. STELARA [Suspect]
     Active Substance: USTEKINUMAB
     Route: 058
  3. NITROFURANTOIN [Concomitant]
     Active Substance: NITROFURANTOIN

REACTIONS (3)
  - Pain in extremity [Not Recovered/Not Resolved]
  - Pustule [Not Recovered/Not Resolved]
  - Off label use [Unknown]
